FAERS Safety Report 8383974-6 (Version None)
Quarter: 2012Q2

REPORT INFORMATION
  Report Type: 
  Country: None (occurrence: None)
  Receive Date: 20120524
  Receipt Date: 20120522
  Transmission Date: 20120825
  Serious: Yes (Death)
  Sender: FDA-Public Use
  Company Number: US-ROCHE-1071297

PATIENT
  Sex: Female
  Weight: 33.959 kg

DRUGS (8)
  1. HYDROCORTISONE [Concomitant]
  2. PREVACID [Concomitant]
  3. VITAMIN TAB [Concomitant]
  4. CYCLOPROPANE [Concomitant]
     Dosage: REPORTED AS MICLOPROPAN
  5. NUTROPIN AQ [Suspect]
     Indication: GROWTH HORMONE DEFICIENCY
     Route: 058
     Dates: start: 20010322
  6. MIRALAX [Concomitant]
  7. CORTEF [Suspect]
     Indication: BLOOD CORTICOTROPHIN DECREASED
     Dosage: ROUTE G TUBE
  8. SOLU-CORTEF INJECTABLE [Concomitant]
     Indication: PYREXIA

REACTIONS (1)
  - RESPIRATORY ARREST [None]
